FAERS Safety Report 22187086 (Version 1)
Quarter: 2023Q2

REPORT INFORMATION
  Report Type: Report from Study
  Country: JP (occurrence: JP)
  Receive Date: 20230407
  Receipt Date: 20230407
  Transmission Date: 20230722
  Serious: Yes (Death)
  Sender: FDA-Public Use
  Company Number: JP-ABBVIE-4153352

PATIENT
  Age: 75 Year
  Sex: Female

DRUGS (2)
  1. CARBIDOPA\LEVODOPA [Suspect]
     Active Substance: CARBIDOPA\LEVODOPA
     Indication: Parkinson^s disease
     Route: 050
     Dates: start: 20220629
  2. CARBIDOPA\LEVODOPA [Suspect]
     Active Substance: CARBIDOPA\LEVODOPA

REACTIONS (8)
  - Death [Fatal]
  - Head titubation [Unknown]
  - Arthralgia [Unknown]
  - Therapeutic product effect increased [Unknown]
  - Neck pain [Unknown]
  - Gait disturbance [Unknown]
  - Fall [Unknown]
  - Posture abnormal [Unknown]

NARRATIVE: CASE EVENT DATE: 20221113
